FAERS Safety Report 16146574 (Version 4)
Quarter: 2019Q3

REPORT INFORMATION
  Report Type: Spontaneous
  Country: JP (occurrence: JP)
  Receive Date: 20190402
  Receipt Date: 20190814
  Transmission Date: 20191004
  Serious: Yes (Death, Hospitalization, Other)
  Sender: FDA-Public Use
  Company Number: JP-ALEXION PHARMACEUTICALS INC.-A201901554

PATIENT

DRUGS (6)
  1. SOLIRIS [Suspect]
     Active Substance: ECULIZUMAB
     Indication: ATYPICAL HAEMOLYTIC URAEMIC SYNDROME
     Dosage: 900 MG, QW
     Route: 042
     Dates: start: 20181130, end: 20181222
  2. CALCICOL [Concomitant]
     Active Substance: CALCIUM GLUCONATE
     Indication: PLASMAPHERESIS
     Dosage: 8.5 UNK, DAILY
     Route: 042
     Dates: start: 20181130
  3. CALCICOL [Concomitant]
     Active Substance: CALCIUM GLUCONATE
     Dosage: 6 UNK, DAILY
     Route: 042
  4. SOLIRIS [Suspect]
     Active Substance: ECULIZUMAB
     Dosage: 1200 MG, UNK
     Route: 042
     Dates: start: 20181229, end: 20190313
  5. NEOPHAGEN                          /00467204/ [Concomitant]
     Active Substance: CYSTEINE\GLYCINE\GLYCYRRHIZIN
     Indication: PLASMAPHERESIS
     Dosage: 20 ML, DAILY
     Route: 042
     Dates: start: 20181130
  6. POLARAMINE [Concomitant]
     Active Substance: DEXCHLORPHENIRAMINE MALEATE
     Indication: PLASMAPHERESIS
     Dosage: 5 MG, DAILY
     Route: 041
     Dates: start: 20181130

REACTIONS (3)
  - Dermatitis exfoliative generalised [Recovering/Resolving]
  - Pachymeningitis [Not Recovered/Not Resolved]
  - Pneumonia fungal [Fatal]

NARRATIVE: CASE EVENT DATE: 20190125
